FAERS Safety Report 7230612-1 (Version None)
Quarter: 2011Q1

REPORT INFORMATION
  Report Type: 
  Country: None (occurrence: None)
  Receive Date: 20110118
  Receipt Date: 20110113
  Transmission Date: 20110831
  Serious: Yes (Death)
  Sender: FDA-Public Use
  Company Number: FR-B.I. PHARMACEUTICALS,INC./RIDGEFIELD-2010-FF-00936FF

PATIENT
  Sex: Female
  Weight: 72 kg

DRUGS (11)
  1. ALLOPURINOL [Concomitant]
     Dosage: 100 MG
     Route: 048
  2. PRADAXA [Suspect]
     Indication: HIP ARTHROPLASTY
     Dosage: 150 MG
     Route: 048
     Dates: start: 20101116
  3. EUPHYLLINE [Concomitant]
     Indication: BRONCHIAL DISORDER
     Dosage: 200 MG
     Route: 048
  4. PARIET [Concomitant]
     Dosage: 10 MG
     Route: 048
  5. APRANAX [Suspect]
     Dosage: 1100 MG
     Route: 048
  6. FUROSEMIDE [Concomitant]
     Dosage: 40 MG
     Route: 048
  7. DAFLON [Concomitant]
     Route: 048
  8. FURADANTINE [Concomitant]
     Indication: URINARY TRACT INFECTION
  9. BRISTOPEN [Concomitant]
     Dosage: 1000 MG
     Route: 048
  10. DOLIPRANE [Concomitant]
     Dosage: 3000 MG
     Route: 048
  11. LEXOMIL [Concomitant]
     Dosage: 1/4 TABLET DAILY
     Route: 048

REACTIONS (7)
  - ATRIAL FIBRILLATION [None]
  - HAEMODYNAMIC INSTABILITY [None]
  - CARDIAC FAILURE [None]
  - GASTROINTESTINAL HAEMORRHAGE [None]
  - HAEMATEMESIS [None]
  - MELAENA [None]
  - COAGULOPATHY [None]
